FAERS Safety Report 5005847-9 (Version None)
Quarter: 2006Q2

REPORT INFORMATION
  Report Type: 
  Country: None (occurrence: None)
  Receive Date: 20060517
  Receipt Date: 20060517
  Transmission Date: 20061013
  Serious: Yes (Hospitalization)
  Sender: FDA-Public Use
  Company Number: None

PATIENT
  Age: 58 Year
  Sex: Male

DRUGS (11)
  1. TOPIRAMATE [Suspect]
     Indication: NEUROPATHY
     Dosage: 100MG BID
     Dates: start: 20051201
  2. TOPIRAMATE [Suspect]
     Indication: TREMOR
     Dosage: 100MG BID
     Dates: start: 20051201
  3. AMITRIPTYLINE HCL [Concomitant]
  4. ASPIRIN [Concomitant]
  5. CA ACETATE [Concomitant]
  6. PLAVIX [Concomitant]
  7. FES04 [Concomitant]
  8. NIACIN [Concomitant]
  9. NITROGLYCERIN [Concomitant]
  10. OMEPRAZOLE [Concomitant]
  11. ZOCOR [Concomitant]

REACTIONS (1)
  - MENTAL STATUS CHANGES [None]
